FAERS Safety Report 12780149 (Version 2)
Quarter: 2016Q4

REPORT INFORMATION
  Report Type: Spontaneous
  Country: GB (occurrence: GB)
  Receive Date: 20160926
  Receipt Date: 20161020
  Transmission Date: 20170207
  Serious: Yes (Hospitalization)
  Sender: FDA-Public Use
  Company Number: GB-GLAXOSMITHKLINE-GB2016137515

PATIENT
  Age: 85 Year
  Sex: Female

DRUGS (1)
  1. ZANTAC [Suspect]
     Active Substance: RANITIDINE HYDROCHLORIDE
     Indication: GASTROOESOPHAGEAL REFLUX DISEASE
     Dosage: ONLY TOOK ONCE
     Route: 048
     Dates: start: 201606, end: 201606

REACTIONS (12)
  - Chest discomfort [Recovered/Resolved]
  - Feeling hot [Recovered/Resolved]
  - Renal pain [Recovered/Resolved]
  - Blood pressure increased [Recovered/Resolved]
  - Anal incontinence [Recovered/Resolved]
  - Dyspnoea [Recovered/Resolved]
  - Lower urinary tract symptoms [Recovered/Resolved]
  - Burning sensation [Recovered/Resolved]
  - Pulmonary pain [Recovered/Resolved]
  - Genital pain [Recovered/Resolved]
  - Reaction to drug excipients [Recovered/Resolved]
  - Pain [Recovered/Resolved]

NARRATIVE: CASE EVENT DATE: 201606
